FAERS Safety Report 6004816-X (Version None)
Quarter: 2008Q4

REPORT INFORMATION
  Report Type: 
  Country: None (occurrence: None)
  Receive Date: 20081215
  Receipt Date: 20081105
  Transmission Date: 20090506
  Serious: Yes (Other)
  Sender: FDA-Public Use
  Company Number: 08-588

PATIENT
  Age: 38 Year
  Sex: Female

DRUGS (2)
  1. ALEVE [Suspect]
     Indication: ANALGESIA
     Dosage: 220 MG, DAILY, ORAL
     Route: 048
     Dates: start: 20081022, end: 20081027
  2. CYMBALTA [Concomitant]

REACTIONS (1)
  - HYPERSENSITIVITY [None]
